FAERS Safety Report 5376438-5 (Version None)
Quarter: 2007Q3

REPORT INFORMATION
  Report Type: 
  Country: None (occurrence: None)
  Receive Date: 20070702
  Receipt Date: 20070622
  Transmission Date: 20080115
  Serious: Yes (Other)
  Sender: FDA-Public Use
  Company Number: FR-PFIZER INC-2007051783

PATIENT
  Age: 59 Year
  Sex: Female

DRUGS (2)
  1. LYRICA [Suspect]
     Indication: NEURALGIA
  2. AVLOCARDYL [Suspect]
     Indication: ARRHYTHMIA

REACTIONS (4)
  - ASTHENIA [None]
  - BRADYCARDIA [None]
  - MALAISE [None]
  - VISUAL DISTURBANCE [None]
